FAERS Safety Report 8865459 (Version 1)
Quarter: 2012Q4

REPORT INFORMATION
  Report Type: 
  Country: US (occurrence: US)
  Receive Date: 20121024
  Receipt Date: 20121024
  Transmission Date: 20130627
  Serious: No
  Sender: FDA-Public Use
  Company Number: US-AMGEN-USASP2012003299

PATIENT
  Sex: Female
  Weight: 62.59 kg

DRUGS (10)
  1. ENBREL [Suspect]
     Indication: PRODUCT USED FOR UNKNOWN INDICATION
     Dosage: 50 mg, qwk
     Route: 058
  2. SYNTHROID [Concomitant]
     Dosage: 100 mug, UNK
     Route: 048
  3. TYLENOL /00020001/ [Concomitant]
     Dosage: 500 mg, UNK
     Route: 048
  4. IMITREX                            /01044801/ [Concomitant]
     Dosage: 25 mg, UNK
     Route: 048
  5. XANAX [Concomitant]
     Dosage: 0.5 mg, UNK
     Route: 048
  6. EFFEXOR [Concomitant]
     Dosage: 100 mg, UNK
     Route: 048
  7. PRAVACHOL [Concomitant]
     Dosage: 40 mg, UNK
     Route: 048
  8. CLONIDINE [Concomitant]
     Dosage: 0.1 mg, UNK
     Route: 048
  9. ULTRAM [Concomitant]
     Dosage: 50 mg, UNK
     Route: 048
  10. RANITIDINE [Concomitant]
     Dosage: 75 mg, UNK
     Route: 048

REACTIONS (1)
  - Headache [Unknown]
